FAERS Safety Report 26083405 (Version 1)
Quarter: 2025Q4

REPORT INFORMATION
  Report Type: Spontaneous
  Country: IN (occurrence: IN)
  Receive Date: 20251124
  Receipt Date: 20251124
  Transmission Date: 20260118
  Serious: Yes (Other)
  Sender: SLATE RUN
  Company Number: IN-SLATERUN-2025SRLIT00220

PATIENT
  Age: 79 Year
  Sex: Male

DRUGS (8)
  1. VANCOMYCIN [Suspect]
     Active Substance: VANCOMYCIN
     Indication: Evidence based treatment
     Dosage: 1 MG/0.1 ML
     Route: 065
  2. VANCOMYCIN [Suspect]
     Active Substance: VANCOMYCIN
     Route: 065
  3. VANCOMYCIN [Suspect]
     Active Substance: VANCOMYCIN
     Dosage: EVERY 2 H
     Route: 065
  4. AMIKACIN [Suspect]
     Active Substance: AMIKACIN
     Indication: Evidence based treatment
     Dosage: 0.4 MG/0.1 ML
     Route: 065
  5. AMIKACIN [Suspect]
     Active Substance: AMIKACIN
     Dosage: 0.4 MG/0.1 ML
     Route: 065
  6. AMIKACIN [Suspect]
     Active Substance: AMIKACIN
     Route: 065
  7. CYCLOPENTOLATE HYDROCHLORIDE [Suspect]
     Active Substance: CYCLOPENTOLATE HYDROCHLORIDE
     Indication: Evidence based treatment
     Route: 061
  8. DOXYCYCLINE [Suspect]
     Active Substance: DOXYCYCLINE
     Indication: Evidence based treatment
     Route: 048

REACTIONS (2)
  - Persistent corneal epithelial defect [Unknown]
  - Corneal abscess [Unknown]
